FAERS Safety Report 16859035 (Version 3)
Quarter: 2020Q4

REPORT INFORMATION
  Report Type: Report from Study
  Country: US (occurrence: US)
  Receive Date: 20190926
  Receipt Date: 20201216
  Transmission Date: 20210113
  Serious: No
  Sender: FDA-Public Use
  Company Number: PHEH2019US039697

PATIENT
  Sex: Female

DRUGS (3)
  1. GILENYA [Suspect]
     Active Substance: FINGOLIMOD HYDROCHLORIDE
     Indication: RELAPSING-REMITTING MULTIPLE SCLEROSIS
     Dosage: 0.5 MG, QD
     Route: 048
     Dates: start: 20140827
  2. PROVIGIL [Suspect]
     Active Substance: MODAFINIL
     Dosage: 200 MG
     Route: 065
  3. PROVIGIL [Suspect]
     Active Substance: MODAFINIL
     Indication: SOMNOLENCE
     Dosage: UNK
     Route: 065

REACTIONS (4)
  - Disturbance in attention [Not Recovered/Not Resolved]
  - Somnolence [Not Recovered/Not Resolved]
  - Fatigue [Not Recovered/Not Resolved]
  - Feeling jittery [Not Recovered/Not Resolved]
